FAERS Safety Report 4639821-9 (Version None)
Quarter: 2005Q2

REPORT INFORMATION
  Report Type: 
  Country: None (occurrence: None)
  Receive Date: 20050420
  Receipt Date: 20050411
  Transmission Date: 20051028
  Serious: Yes (Hospitalization)
  Sender: FDA-Public Use
  Company Number: JP-JNJFOC-20041004724

PATIENT
  Sex: Female
  Weight: 52 kg

DRUGS (18)
  1. REMICADE [Suspect]
     Route: 042
  2. REMICADE [Suspect]
     Route: 042
  3. REMICADE [Suspect]
     Route: 042
  4. REMICADE [Suspect]
     Route: 042
  5. REMICADE [Suspect]
     Route: 042
  6. REMICADE [Suspect]
     Indication: RHEUMATOID ARTHRITIS
     Route: 042
  7. PREDONINE [Concomitant]
     Indication: RHEUMATOID ARTHRITIS
     Route: 049
  8. TAKEPRON [Concomitant]
     Route: 049
  9. VOLTAREN [Concomitant]
     Indication: RHEUMATOID ARTHRITIS
     Route: 049
  10. FOLIAMIN [Concomitant]
     Indication: RHEUMATOID ARTHRITIS
     Route: 049
  11. AZULFIDINE [Concomitant]
     Indication: RHEUMATOID ARTHRITIS
     Route: 049
  12. METHOTREXATE [Concomitant]
  13. METHOTREXATE [Concomitant]
  14. METHOTREXATE [Concomitant]
  15. METHOTREXATE [Concomitant]
  16. METHOTREXATE [Concomitant]
  17. METHOTREXATE [Concomitant]
  18. INFREE [Concomitant]
     Route: 049

REACTIONS (2)
  - CRYPTOGENIC ORGANIZING PNEUMONIA [None]
  - PNEUMONIA [None]
